FAERS Safety Report 5775155-7 (Version None)
Quarter: 2008Q2

REPORT INFORMATION
  Report Type: 
  Country: None (occurrence: None)
  Receive Date: 20080617
  Receipt Date: 20080616
  Transmission Date: 20081010
  Serious: Yes (Other)
  Sender: FDA-Public Use
  Company Number: US-BRISTOL-MYERS SQUIBB COMPANY-14230015

PATIENT
  Age: 27 Year
  Sex: Male
  Weight: 61 kg

DRUGS (2)
  1. ABILIFY [Suspect]
     Indication: SCHIZOAFFECTIVE DISORDER
     Route: 048
     Dates: start: 20080522
  2. INVEGA [Interacting]
     Indication: SCHIZOAFFECTIVE DISORDER
     Dosage: INVEGA OROS(ORAL OSMOTIC)THERAPEUTIC SYSTEM TABLET
     Route: 048
     Dates: start: 20080524

REACTIONS (2)
  - DRUG INTERACTION [None]
  - INSOMNIA [None]
